FAERS Safety Report 26147637 (Version 1)
Quarter: 2025Q4

REPORT INFORMATION
  Report Type: Spontaneous
  Country: US (occurrence: US)
  Receive Date: 20251211
  Receipt Date: 20251211
  Transmission Date: 20260117
  Serious: Yes (Other)
  Sender: BAXTER
  Company Number: US-BAXTER-2025BAX025558

PATIENT
  Age: 76 Year
  Sex: Male

DRUGS (2)
  1. NEXTERONE [Suspect]
     Active Substance: AMIODARONE HYDROCHLORIDE
     Dosage: RESTARTED DURING ADMISSION
     Route: 065
  2. DIGOXIN [Suspect]
     Active Substance: DIGOXIN
     Dosage: 125 UG, QD (RESTARTED DURING ADMISSION)
     Route: 065

REACTIONS (2)
  - Ventricular fibrillation [Recovered/Resolved]
  - Ventricular tachycardia [Unknown]
